FAERS Safety Report 7405968-7 (Version None)
Quarter: 2011Q2

REPORT INFORMATION
  Report Type: 
  Country: None (occurrence: None)
  Receive Date: 20110411
  Receipt Date: 20101005
  Transmission Date: 20111010
  Serious: Yes (Hospitalization)
  Sender: FDA-Public Use
  Company Number: US-BAYER-201011519NA

PATIENT
  Age: 43 Year
  Sex: Female
  Weight: 120.18 kg

DRUGS (9)
  1. LORTAB [Concomitant]
     Dates: start: 20011024, end: 20070102
  2. VICODIN [Concomitant]
     Dates: start: 20011024, end: 20070102
  3. LUNESTA [Concomitant]
     Dosage: 2 MG, UNK
  4. PROZAC [Concomitant]
     Dosage: 20 MG, QD
  5. YASMIN [Suspect]
     Indication: MENSTRUAL DISORDER
  6. FLUOXETINE [Concomitant]
     Indication: DEPRESSION
     Dosage: 20 MG (DAILY DOSE), QD,
     Dates: start: 20001019, end: 20070102
  7. YASMIN [Suspect]
     Indication: CONTRACEPTION
     Route: 048
     Dates: start: 20050801, end: 20070101
  8. MULTI-VITAMIN [Concomitant]
  9. HYDROCODONE BITARTRATE AND ACETAMINOPHEN [Concomitant]
     Dosage: UNK
     Dates: start: 20050101

REACTIONS (4)
  - CEREBROVASCULAR ACCIDENT [None]
  - HEMIPLEGIA [None]
  - HEMIPARESIS [None]
  - DEEP VEIN THROMBOSIS [None]
